FAERS Safety Report 4631818-8 (Version None)
Quarter: 2005Q2

REPORT INFORMATION
  Report Type: 
  Country: None (occurrence: None)
  Receive Date: 20050411
  Receipt Date: 20050330
  Transmission Date: 20051028
  Serious: Yes (Hospitalization)
  Sender: FDA-Public Use
  Company Number: US-JNJFOC-20050202216

PATIENT
  Sex: Male

DRUGS (12)
  1. REMICADE [Suspect]
     Indication: RHEUMATOID ARTHRITIS
     Dosage: INFUSION #4
     Route: 042
  2. LOPRESSOR [Concomitant]
     Route: 065
  3. ASPIRIN [Concomitant]
     Route: 065
  4. PREDNISONE TAB [Concomitant]
     Route: 065
  5. PLAQUENIL [Concomitant]
     Route: 065
  6. METHOTREXATE [Concomitant]
     Route: 065
  7. ALLOPURINOL [Concomitant]
     Route: 065
  8. GLYBURIDE [Concomitant]
     Route: 065
  9. GLUCOPHAGE [Concomitant]
     Route: 065
  10. INSULIN [Concomitant]
     Route: 065
  11. HYTRIN [Concomitant]
     Route: 065
  12. PROSCAR [Concomitant]
     Route: 065

REACTIONS (1)
  - CARDIAC DISORDER [None]
